FAERS Safety Report 24379179 (Version 1)
Quarter: 2024Q3

REPORT INFORMATION
  Report Type: Spontaneous
  Country: US (occurrence: US)
  Receive Date: 20240930
  Receipt Date: 20240930
  Transmission Date: 20241017
  Serious: Yes (Hospitalization, Other)
  Sender: TEVA
  Company Number: US-TEVA-VS-3246794

PATIENT
  Age: 11 Year
  Sex: Male
  Weight: 56.7 kg

DRUGS (1)
  1. MEXILETINE [Suspect]
     Active Substance: MEXILETINE
     Indication: Paramyotonia congenita
     Route: 065

REACTIONS (6)
  - Generalised tonic-clonic seizure [Unknown]
  - Intentional product misuse [Unknown]
  - Loss of consciousness [Recovered/Resolved with Sequelae]
  - Partial seizures [Unknown]
  - Electroencephalogram abnormal [Unknown]
  - Product use in unapproved indication [Unknown]

NARRATIVE: CASE EVENT DATE: 20240709
